FAERS Safety Report 8313933-0 (Version None)
Quarter: 2012Q2

REPORT INFORMATION
  Report Type: 
  Country: None (occurrence: None)
  Receive Date: 20120426
  Receipt Date: 20120426
  Transmission Date: 20120825
  Serious: No
  Sender: FDA-Public Use
  Company Number: None

PATIENT
  Age: 21 Year
  Sex: Female
  Weight: 72.574 kg

DRUGS (3)
  1. NUVARING [Suspect]
     Indication: CONTRACEPTION
     Route: 067
  2. NUVARING [Suspect]
     Indication: CONTRACEPTION
     Route: 067
     Dates: start: 20091101, end: 20120301
  3. NUVARING [Concomitant]

REACTIONS (1)
  - WEIGHT INCREASED [None]
